FAERS Safety Report 6936531-X (Version None)
Quarter: 2010Q3

REPORT INFORMATION
  Report Type: 
  Country: None (occurrence: None)
  Receive Date: 20100823
  Receipt Date: 20100813
  Transmission Date: 20110219
  Serious: Yes (Other)
  Sender: FDA-Public Use
  Company Number: US-PFIZER INC-2010102855

PATIENT
  Sex: Male
  Weight: 68 kg

DRUGS (4)
  1. CHANTIX [Suspect]
     Indication: SMOKING CESSATION THERAPY
     Dosage: 0.5 MG, 1X/DAY
     Route: 048
     Dates: start: 20100813
  2. XANAX [Concomitant]
     Indication: INSOMNIA
     Dosage: UNK
  3. FLEXERIL [Concomitant]
     Indication: MUSCLE RELAXANT THERAPY
     Dosage: UNK
  4. VICODIN [Concomitant]
     Indication: BACK PAIN
     Dosage: UNK

REACTIONS (3)
  - AGITATION [None]
  - ANGER [None]
  - PSYCHOMOTOR HYPERACTIVITY [None]
